FAERS Safety Report 7597294-0 (Version None)
Quarter: 2011Q3

REPORT INFORMATION
  Report Type: 
  Country: None (occurrence: None)
  Receive Date: 20110708
  Receipt Date: 20110318
  Transmission Date: 20111222
  Serious: No
  Sender: FDA-Public Use
  Company Number: US-GLAXOSMITHKLINE-A0918959A

PATIENT
  Sex: Female

DRUGS (14)
  1. COQ10 [Concomitant]
  2. VERPAMIL HCL [Concomitant]
  3. SIMVASTATIN [Concomitant]
  4. VITAMIN D [Concomitant]
  5. NABUMETONE [Concomitant]
  6. ALBUTEROL SULFATE AUTOHALER [Concomitant]
  7. GLUCOSAMINE CHONDROITIN [Concomitant]
  8. ZOMIG [Concomitant]
  9. LORATADINE [Concomitant]
  10. FLOVENT [Suspect]
     Indication: ASTHMA
     Dosage: 2PUFF TWICE PER DAY
     Route: 055
  11. CALCIUM CARBONATE [Concomitant]
  12. MULTI-VITAMIN [Concomitant]
  13. MAGNESIUM [Concomitant]
  14. PROTONIX [Concomitant]

REACTIONS (2)
  - PRODUCT QUALITY ISSUE [None]
  - DYSPNOEA [None]
